FAERS Safety Report 9438323 (Version 1)
Quarter: 2013Q3

REPORT INFORMATION
  Report Type: Spontaneous
  Country: US (occurrence: US)
  Receive Date: 20130802
  Receipt Date: 20130802
  Transmission Date: 20140515
  Serious: No
  Sender: FDA-Public Use
  Company Number: US-BRISTOL-MYERS SQUIBB COMPANY-17031774

PATIENT
  Age: 68 Year
  Sex: Female

DRUGS (2)
  1. COUMADIN [Suspect]
  2. ENOXAPARIN SODIUM [Suspect]
     Dosage: PARENTAL,INJ,SOLUTION,100MG/ML.
     Dates: start: 20120920, end: 20120924

REACTIONS (1)
  - Injection site haemorrhage [Unknown]
